FAERS Safety Report 11580877 (Version 2)
Quarter: 2015Q4

REPORT INFORMATION
  Report Type: Spontaneous
  Country: DE (occurrence: DE)
  Receive Date: 20151001
  Receipt Date: 20151012
  Transmission Date: 20160304
  Serious: Yes (Other)
  Sender: FDA-Public Use
  Company Number: DE-ROCHE-1640020

PATIENT
  Age: 73 Year
  Sex: Female

DRUGS (17)
  1. MABTHERA [Suspect]
     Active Substance: RITUXIMAB
     Dosage: 5 CYCLES OF R-FCM
     Route: 065
     Dates: start: 2007, end: 2008
  2. VINCRISTINE [Suspect]
     Active Substance: VINCRISTINE
     Indication: NODAL MARGINAL ZONE B-CELL LYMPHOMA
     Dosage: 6 CYCLES
     Route: 065
     Dates: start: 2005, end: 2005
  3. CYCLOPHOSPHAMIDE. [Concomitant]
     Active Substance: CYCLOPHOSPHAMIDE
     Dosage: 5 CYCLES
     Route: 065
     Dates: start: 2007, end: 2008
  4. MABTHERA [Suspect]
     Active Substance: RITUXIMAB
     Dosage: 6 CYCLES R-BENDAMUSTINE
     Route: 065
     Dates: start: 2012
  5. BENDAMUSTINE [Concomitant]
     Active Substance: BENDAMUSTINE
     Indication: NODAL MARGINAL ZONE B-CELL LYMPHOMA
     Dosage: 6 CYCLES
     Route: 065
     Dates: start: 2012, end: 2012
  6. MABTHERA [Suspect]
     Active Substance: RITUXIMAB
     Dosage: R-ET
     Route: 065
     Dates: end: 2010
  7. MITOXANTRONE [Concomitant]
     Active Substance: MITOXANTRONE HYDROCHLORIDE
     Indication: NODAL MARGINAL ZONE B-CELL LYMPHOMA
     Dosage: 5 CYCLES
     Route: 065
     Dates: start: 2007, end: 2008
  8. DOCETAXEL. [Concomitant]
     Active Substance: DOCETAXEL
     Dosage: 6 CYCLES
     Route: 065
     Dates: start: 2012
  9. FLUDARABINE [Concomitant]
     Active Substance: FLUDARABINE PHOSPHATE
     Indication: NODAL MARGINAL ZONE B-CELL LYMPHOMA
     Dosage: 5 CYCLES
     Route: 065
     Dates: start: 2007, end: 2008
  10. MABTHERA [Suspect]
     Active Substance: RITUXIMAB
     Indication: NODAL MARGINAL ZONE B-CELL LYMPHOMA
     Dosage: 6 CYCLES OF R-CHOP
     Route: 065
     Dates: start: 2005, end: 2005
  11. DOXORUBICIN [Concomitant]
     Active Substance: DOXORUBICIN
     Indication: NODAL MARGINAL ZONE B-CELL LYMPHOMA
     Dosage: 6 CYCLES
     Route: 065
     Dates: start: 2005, end: 2005
  12. EPIRUBICIN [Concomitant]
     Active Substance: EPIRUBICIN
     Indication: NODAL MARGINAL ZONE B-CELL LYMPHOMA
     Dosage: 5 CYCLES
     Route: 065
     Dates: end: 2010
  13. DOCETAXEL. [Concomitant]
     Active Substance: DOCETAXEL
     Indication: NODAL MARGINAL ZONE B-CELL LYMPHOMA
     Dosage: 5 CYCLES
     Route: 065
     Dates: end: 2010
  14. MABTHERA [Suspect]
     Active Substance: RITUXIMAB
     Dosage: 6 CYCLES OF R-ET
     Route: 065
     Dates: start: 2012
  15. CYCLOPHOSPHAMIDE. [Concomitant]
     Active Substance: CYCLOPHOSPHAMIDE
     Indication: NODAL MARGINAL ZONE B-CELL LYMPHOMA
     Dosage: 6 CYCLES
     Route: 065
     Dates: start: 2005, end: 2005
  16. PREDNISONE. [Concomitant]
     Active Substance: PREDNISONE
     Indication: NODAL MARGINAL ZONE B-CELL LYMPHOMA
     Dosage: 6 CYCLES
     Route: 065
     Dates: start: 2005, end: 2005
  17. EPIRUBICIN [Concomitant]
     Active Substance: EPIRUBICIN
     Dosage: 6 CYCLES
     Route: 065
     Dates: start: 2012

REACTIONS (5)
  - Secondary immunodeficiency [Unknown]
  - Depression [Recovered/Resolved]
  - Polyneuropathy [Unknown]
  - Infection [Unknown]
  - Lymphoma [Not Recovered/Not Resolved]

NARRATIVE: CASE EVENT DATE: 201501
